FAERS Safety Report 18095889 (Version 2)
Quarter: 2020Q4

REPORT INFORMATION
  Report Type: Spontaneous
  Country: US (occurrence: US)
  Receive Date: 20200730
  Receipt Date: 20201201
  Transmission Date: 20210113
  Serious: Yes (Hospitalization, Disabling, Other)
  Sender: FDA-Public Use
  Company Number: US-PURDUE-USA-2020-0160105

PATIENT
  Sex: Female

DRUGS (4)
  1. DILAUDID [Suspect]
     Active Substance: HYDROMORPHONE HYDROCHLORIDE
     Indication: POST PROCEDURAL COMPLICATION
     Dosage: UNKNOWN
     Route: 048
  2. TRAMADOL. [Suspect]
     Active Substance: TRAMADOL
     Indication: PRODUCT USED FOR UNKNOWN INDICATION
     Route: 065
  3. OXYCONTIN [Suspect]
     Active Substance: OXYCODONE HYDROCHLORIDE
     Indication: POST PROCEDURAL COMPLICATION
     Dosage: UNKNOWN
     Route: 048
  4. BUPRENORPHINE TRANSDERMAL PATCH (SIMILAR TO NDA 21-306) [Suspect]
     Active Substance: BUPRENORPHINE
     Indication: PRODUCT USED FOR UNKNOWN INDICATION
     Route: 062

REACTIONS (11)
  - Drug dependence [Recovering/Resolving]
  - Drug abuse [Unknown]
  - Overdose [Unknown]
  - Disability [Unknown]
  - Pneumonia aspiration [Unknown]
  - Behaviour disorder [Unknown]
  - Road traffic accident [Unknown]
  - Imprisonment [Unknown]
  - Dependence [Recovering/Resolving]
  - Coma [Unknown]
  - Legal problem [Unknown]

NARRATIVE: CASE EVENT DATE: 2007
